FAERS Safety Report 25112019 (Version 2)
Quarter: 2025Q2

REPORT INFORMATION
  Report Type: Spontaneous
  Country: ES (occurrence: ES)
  Receive Date: 20250324
  Receipt Date: 20250414
  Transmission Date: 20250716
  Serious: Yes (Congenital Anomaly)
  Sender: MYLAN
  Company Number: None

PATIENT
  Sex: Female
  Weight: 2.86 kg

DRUGS (5)
  1. LEVETIRACETAM [Suspect]
     Active Substance: LEVETIRACETAM
     Indication: Epilepsy
     Dosage: 2500 MILLIGRAM, QD (24 HR)
     Dates: start: 2018
  2. LAMOTRIGINE [Suspect]
     Active Substance: LAMOTRIGINE
     Indication: Epilepsy
     Dosage: 500 MILLIGRAM, QD (24 HR)
     Dates: start: 2018
  3. CLOBAZAM [Suspect]
     Active Substance: CLOBAZAM
     Indication: Epilepsy
     Dosage: 10 MILLIGRAM, QD (24 HR)
     Dates: start: 2018
  4. LEVOTHYROXINE SODIUM [Concomitant]
     Active Substance: LEVOTHYROXINE SODIUM
     Indication: Hypothyroidism
     Dosage: 25 MICROGRAM, QD (24 HR)
     Dates: start: 2018
  5. FOLIC ACID [Concomitant]
     Active Substance: FOLIC ACID
     Indication: Pregnancy
     Dosage: 400 MILLIGRAM, QD
     Dates: start: 2018

REACTIONS (2)
  - Anorectal malformation [Recovered/Resolved with Sequelae]
  - Foetal exposure during pregnancy [Recovered/Resolved with Sequelae]

NARRATIVE: CASE EVENT DATE: 20180101
